FAERS Safety Report 5748135-5 (Version None)
Quarter: 2008Q2

REPORT INFORMATION
  Report Type: 
  Country: None (occurrence: None)
  Receive Date: 20080523
  Receipt Date: 20080520
  Transmission Date: 20081010
  Serious: Yes (Hospitalization)
  Sender: FDA-Public Use
  Company Number: US-BOEHRINGER INGELHEIM GMBH, GERMANY-2008-BP-07943BP

PATIENT
  Sex: Female

DRUGS (8)
  1. SPIRIVA [Suspect]
     Indication: CHRONIC OBSTRUCTIVE PULMONARY DISEASE
     Route: 055
     Dates: start: 20050101
  2. FOLIC ACID [Concomitant]
  3. CARBATROL [Concomitant]
     Indication: MUSCLE TWITCHING
  4. TRIAMTERENE [Concomitant]
     Indication: SWELLING
  5. METHOTREXATE [Concomitant]
     Indication: PSORIASIS
  6. OMEPRAZOLE [Concomitant]
     Indication: DYSPEPSIA
  7. DETROL LA [Concomitant]
     Indication: HYPERTONIC BLADDER
  8. ADVAIR DISKUS 100/50 [Concomitant]
     Indication: CHRONIC OBSTRUCTIVE PULMONARY DISEASE

REACTIONS (2)
  - DYSPNOEA [None]
  - PNEUMONIA [None]
